FAERS Safety Report 8012650-4 (Version None)
Quarter: 2011Q4

REPORT INFORMATION
  Report Type: 
  Country: None (occurrence: None)
  Receive Date: 20111222
  Receipt Date: 20111212
  Transmission Date: 20120403
  Serious: No
  Sender: FDA-Public Use
  Company Number: THQ2011A08218

PATIENT
  Age: 62 Year
  Sex: Female

DRUGS (2)
  1. OTHER TYPES OF ANTI-DIABETES PRODUCTS (DRUG USED IN DIABETES) [Concomitant]
  2. ACTOS [Suspect]
     Indication: DIABETES MELLITUS
     Dosage: 30 MG (1 D)
     Route: 048
     Dates: end: 20100801

REACTIONS (4)
  - BLADDER CANCER [None]
  - OEDEMA PERIPHERAL [None]
  - DIABETES MELLITUS INADEQUATE CONTROL [None]
  - RENAL FAILURE [None]
